FAERS Safety Report 10076520 (Version 1)
Quarter: 2014Q2

REPORT INFORMATION
  Report Type: Spontaneous
  Country: US (occurrence: US)
  Receive Date: 20140414
  Receipt Date: 20140414
  Transmission Date: 20141212
  Serious: No
  Sender: FDA-Public Use
  Company Number: US-BAYER-2014-049104

PATIENT
  Age: 71 Year
  Sex: Male
  Weight: 79.37 kg

DRUGS (2)
  1. ALEVE TABLET [Suspect]
     Indication: BACK PAIN
     Dosage: 2 DF, BID
     Route: 048
     Dates: start: 1999
  2. ALEVE LIQUID GELS [Suspect]
     Indication: BACK PAIN
     Route: 048

REACTIONS (4)
  - Abdominal pain upper [Recovered/Resolved]
  - Incorrect drug administration duration [None]
  - Extra dose administered [None]
  - Drug ineffective [None]
